FAERS Safety Report 7786380-8 (Version None)
Quarter: 2011Q3

REPORT INFORMATION
  Report Type: 
  Country: None (occurrence: None)
  Receive Date: 20110929
  Receipt Date: 20110928
  Transmission Date: 20111222
  Serious: Yes (Death)
  Sender: FDA-Public Use
  Company Number: PHEH2011US05310

PATIENT
  Sex: Male

DRUGS (1)
  1. EXJADE [Suspect]
     Dosage: 500 MG, THREE TABLETS ONCE DAILY
     Route: 048
     Dates: start: 20110729, end: 20110905

REACTIONS (1)
  - DEATH [None]
